FAERS Safety Report 8573357-8 (Version None)
Quarter: 2012Q2

REPORT INFORMATION
  Report Type: 
  Country: None (occurrence: None)
  Receive Date: 20120423
  Receipt Date: 20110506
  Transmission Date: 20120825
  Serious: Yes (Disabling, Other)
  Sender: FDA-Public Use
  Company Number: FK201100959

PATIENT
  Sex: Male

DRUGS (4)
  1. HEPARIN SODIUM [Suspect]
     Indication: PRODUCT USED FOR UNKNOWN INDICATION
     Dosage: TWO HEPARIN INJECTIONS OF 5000 UNITS
     Dates: start: 20090215
  2. HEPARIN [Suspect]
     Indication: PRODUCT USED FOR UNKNOWN INDICATION
     Dosage: 5000 UNITS IV / 500 ML IV : 6000 UNITS IV
     Route: 042
     Dates: start: 20090214
  3. HEPARIN [Suspect]
     Indication: PRODUCT USED FOR UNKNOWN INDICATION
     Dosage: 5000 UNITS IV / 500 ML IV : 6000 UNITS IV
     Route: 042
     Dates: start: 20090220, end: 20090222
  4. HEPARIN [Suspect]
     Indication: PRODUCT USED FOR UNKNOWN INDICATION
     Dosage: 5000 UNITS IV / 500 ML IV : 6000 UNITS IV
     Route: 042
     Dates: start: 20090219

REACTIONS (2)
  - LEG AMPUTATION [None]
  - HEPARIN-INDUCED THROMBOCYTOPENIA [None]
